FAERS Safety Report 14497940 (Version 3)
Quarter: 2018Q1

REPORT INFORMATION
  Report Type: Spontaneous
  Country: GB (occurrence: GB)
  Receive Date: 20180207
  Receipt Date: 20180312
  Transmission Date: 20180509
  Serious: Yes (Other)
  Sender: FDA-Public Use
  Company Number: GB-IPSEN BIOPHARMACEUTICALS, INC.-2018-02190

PATIENT
  Age: 30 Year
  Sex: Male

DRUGS (5)
  1. LONSURF [Suspect]
     Active Substance: TIPIRACIL HYDROCHLORIDE\TRIFLURIDINE
     Indication: COLORECTAL CANCER METASTATIC
     Dates: start: 201712
  2. OXALIPLATINE [Suspect]
     Active Substance: OXALIPLATIN
     Indication: COLORECTAL CANCER METASTATIC
     Dates: start: 201612, end: 201704
  3. PEGYLATED LIPOSOMAL IRINOTECAN [Suspect]
     Active Substance: IRINOTECAN HYDROCHLORIDE
     Indication: COLORECTAL CANCER METASTATIC
     Dosage: NOT REPORTED
     Route: 065
     Dates: start: 201708
  4. PEGYLATED LIPOSOMAL IRINOTECAN [Suspect]
     Active Substance: IRINOTECAN HYDROCHLORIDE
     Indication: OFF LABEL USE
  5. OXALIPLATINE [Suspect]
     Active Substance: OXALIPLATIN
     Dosage: NOT REPORTED
     Dates: start: 201708

REACTIONS (2)
  - Blood alkaline phosphatase abnormal [Unknown]
  - Off label use [Unknown]

NARRATIVE: CASE EVENT DATE: 2018
